FAERS Safety Report 5625861-X (Version None)
Quarter: 2008Q1

REPORT INFORMATION
  Report Type: 
  Country: None (occurrence: None)
  Receive Date: 20080212
  Receipt Date: 20080212
  Transmission Date: 20080703
  Serious: Yes (Life-Threatening)
  Sender: FDA-Public Use
  Company Number: None

PATIENT
  Age: 66 Year
  Sex: Male

DRUGS (1)
  1. HEPARIN SODIUM INJECTION [Suspect]
     Indication: CORONARY ARTERY BYPASS
     Dosage: 31,000 UNITS ONCE IV
     Route: 042
     Dates: start: 20080207, end: 20080207

REACTIONS (2)
  - PROCEDURAL HYPOTENSION [None]
  - VASCULAR RESISTANCE SYSTEMIC DECREASED [None]
